FAERS Safety Report 25664971 (Version 3)
Quarter: 2025Q3

REPORT INFORMATION
  Report Type: Spontaneous
  Country: EU (occurrence: EU)
  Receive Date: 20250811
  Receipt Date: 20250909
  Transmission Date: 20251020
  Serious: Yes (Hospitalization, Other)
  Sender: AMICUS THERAPEUTICS
  Company Number: EU-AMICUS THERAPEUTICS, INC.-AMI_4243

PATIENT
  Sex: Female

DRUGS (2)
  1. POMBILITI [Suspect]
     Active Substance: CIPAGLUCOSIDASE ALFA-ATGA
     Indication: Glycogen storage disease type II
     Dosage: 1680 MILLIGRAM, Q2WK
     Route: 042
  2. OPFOLDA [Suspect]
     Active Substance: MIGLUSTAT
     Indication: Glycogen storage disease type II
     Dosage: 260 MILLIGRAM, Q2WK (4 OPFOLDA)
     Route: 048

REACTIONS (1)
  - Near drowning [Recovered/Resolved]

NARRATIVE: CASE EVENT DATE: 20250730
